FAERS Safety Report 23150558 (Version 2)
Quarter: 2023Q4

REPORT INFORMATION
  Report Type: Spontaneous
  Country: AU (occurrence: AU)
  Receive Date: 20231106
  Receipt Date: 20231206
  Transmission Date: 20240110
  Serious: Yes (Life-Threatening)
  Sender: FDA-Public Use
  Company Number: AU-GE HEALTHCARE-2023CSU009754

PATIENT
  Age: 59 Year
  Sex: Female
  Weight: 70 kg

DRUGS (2)
  1. OMNIPAQUE [Suspect]
     Active Substance: IOHEXOL
     Indication: Computerised tomogram heart
     Dosage: 50 ML  AT 5 ML/SEC, ONCE
     Route: 042
     Dates: start: 20231027, end: 20231027
  2. OMNIPAQUE [Suspect]
     Active Substance: IOHEXOL
     Indication: Cardiac monitoring

REACTIONS (5)
  - Sneezing [Recovered/Resolved]
  - Throat irritation [Recovered/Resolved]
  - Dizziness [Recovered/Resolved]
  - Urticaria [Recovered/Resolved]
  - Oral pruritus [Recovered/Resolved]

NARRATIVE: CASE EVENT DATE: 20231027
